FAERS Safety Report 9924802 (Version 1)
Quarter: 2014Q1

REPORT INFORMATION
  Report Type: Spontaneous
  Country: CH (occurrence: None)
  Receive Date: 20140221
  Receipt Date: 20140221
  Transmission Date: 20141002
  Serious: Yes (Death)
  Sender: FDA-Public Use
  Company Number: 1335067

PATIENT
  Age: 79 Year
  Sex: Female

DRUGS (2)
  1. HYDROCORTISONE [Suspect]
     Indication: HYPOTHALAMO-PITUITARY DISORDER
     Route: 042
  2. DEXAMETHASONE [Suspect]
     Indication: HYPOTHALAMO-PITUITARY DISORDER
     Dosage: 3 X 8 MG IV
     Route: 042

REACTIONS (2)
  - Cerebrovascular disorder [None]
  - Vasculitis [None]
